FAERS Safety Report 18858759 (Version 1)
Quarter: 2021Q1

REPORT INFORMATION
  Report Type: Spontaneous
  Country: US (occurrence: US)
  Receive Date: 20210205
  Receipt Date: 20210205
  Transmission Date: 20210420
  Serious: Yes (Death)
  Sender: FDA-Public Use
  Company Number: None

PATIENT
  Age: 59 Year
  Sex: Male

DRUGS (1)
  1. TRIUMEQ [Suspect]
     Active Substance: ABACAVIR SULFATE\DOLUTEGRAVIR SODIUM\LAMIVUDINE
     Indication: HIV INFECTION
     Dosage: ?          OTHER DOSE:TRIUMEQ 600/50/300;?
     Route: 048
     Dates: start: 20181018, end: 20210106

REACTIONS (1)
  - Malnutrition [None]

NARRATIVE: CASE EVENT DATE: 20210129
